FAERS Safety Report 23241762 (Version 5)
Quarter: 2024Q2

REPORT INFORMATION
  Report Type: Spontaneous
  Country: AU (occurrence: AU)
  Receive Date: 20231129
  Receipt Date: 20240625
  Transmission Date: 20240716
  Serious: Yes (Life-Threatening, Hospitalization, Other)
  Sender: FDA-Public Use
  Company Number: AU-SANDOZ-SDZ2023AU060681

PATIENT
  Age: 30 Year
  Sex: Female
  Weight: 69.7 kg

DRUGS (2)
  1. CYCLOPHOSPHAMIDE [Suspect]
     Active Substance: CYCLOPHOSPHAMIDE
     Indication: Lymphodepletion
     Dosage: 1000 MG/M2, QD
     Route: 042
     Dates: start: 20231017, end: 20231023
  2. FLUDARABINE [Suspect]
     Active Substance: FLUDARABINE PHOSPHATE
     Indication: Lymphodepletion
     Dosage: 30 MG/M2, QD
     Route: 042
     Dates: start: 20231017, end: 20231023

REACTIONS (8)
  - Sepsis [Not Recovered/Not Resolved]
  - Hypotension [Unknown]
  - Heart rate increased [Unknown]
  - Pyrexia [Recovered/Resolved]
  - Nausea [Unknown]
  - Cytokine release syndrome [Unknown]
  - Pneumonia fungal [Not Recovered/Not Resolved]
  - Hepatic function abnormal [Unknown]

NARRATIVE: CASE EVENT DATE: 20231112
